FAERS Safety Report 25669052 (Version 1)
Quarter: 2025Q3

REPORT INFORMATION
  Report Type: Report from Study
  Country: US (occurrence: US)
  Receive Date: 20250812
  Receipt Date: 20250812
  Transmission Date: 20251021
  Serious: No
  Sender: SUNOVION
  Company Number: US-SUMITOMO PHARMA SWITZERLAND GMBH-2025SPA010081

PATIENT
  Age: 80 Year
  Sex: Male

DRUGS (18)
  1. ORGOVYX [Suspect]
     Active Substance: RELUGOLIX
     Indication: Prostate cancer
     Route: 048
  2. ORGOVYX [Suspect]
     Active Substance: RELUGOLIX
     Route: 048
  3. ABIRATERONE [Concomitant]
     Active Substance: ABIRATERONE
  4. ALFUZOSIN [Concomitant]
     Active Substance: ALFUZOSIN
  5. AMIODARONE [Concomitant]
     Active Substance: AMIODARONE
  6. ASPIRIN [Concomitant]
     Active Substance: ASPIRIN
  7. CALCIUM CITRATE [Concomitant]
     Active Substance: CALCIUM CITRATE
  8. ELIQUIS [Concomitant]
     Active Substance: APIXABAN
  9. IRON [Concomitant]
     Active Substance: IRON
  10. LEVOTHYROXINE [Concomitant]
     Active Substance: LEVOTHYROXINE
  11. MAGNESIUM OXIDE [Concomitant]
     Active Substance: MAGNESIUM OXIDE
  12. PREDNISONE [Concomitant]
     Active Substance: PREDNISONE
  13. Prostate 2.4 [Concomitant]
  14. ROSUVASTATIN [Concomitant]
     Active Substance: ROSUVASTATIN
  15. TYLENOL [Concomitant]
     Active Substance: ACETAMINOPHEN
  16. VITAMIN D3 [Concomitant]
     Active Substance: CHOLECALCIFEROL
  17. ZINC [Concomitant]
     Active Substance: ZINC
  18. ZOLPIDEM [Concomitant]
     Active Substance: ZOLPIDEM TARTRATE

REACTIONS (1)
  - Night sweats [Unknown]
